FAERS Safety Report 9815764 (Version 1)
Quarter: 2014Q1

REPORT INFORMATION
  Report Type: Spontaneous
  Country: US (occurrence: None)
  Receive Date: 20140110
  Receipt Date: 20140110
  Transmission Date: 20141002
  Serious: Yes (Other)
  Sender: FDA-Public Use
  Company Number: 2014AP000046

PATIENT
  Age: 17 Year
  Sex: Female
  Weight: 38.7 kg

DRUGS (4)
  1. TOBRAMYCIN OPHTHALMIC SOLUTION USP 0.3% [Suspect]
  2. FUROSEMIDE [Suspect]
  3. TACROLIMUS [Suspect]
  4. HEPARIN [Suspect]
     Indication: ANTICOAGULANT THERAPY

REACTIONS (3)
  - Renal failure acute [None]
  - Continuous haemodiafiltration [None]
  - Lung transplant [None]
